FAERS Safety Report 5527036-1 (Version None)
Quarter: 2007Q4

REPORT INFORMATION
  Report Type: 
  Country: None (occurrence: None)
  Receive Date: 20071127
  Receipt Date: 20071116
  Transmission Date: 20080405
  Serious: Yes (Death)
  Sender: FDA-Public Use
  Company Number: US-GENENTECH-247647

PATIENT
  Age: 49 Year
  Sex: Male
  Weight: 104.6 kg

DRUGS (10)
  1. BEVACIZUMAB [Suspect]
     Indication: GLIOBLASTOMA MULTIFORME
     Dosage: 2018 MG, DAYS 1+15
     Route: 042
     Dates: start: 20070727
  2. IRINOTECAN HCL [Suspect]
     Indication: GLIOBLASTOMA MULTIFORME
     Dosage: 515 MG, DAYS 1+15
     Route: 042
     Dates: start: 20070727
  3. BACTRIM [Concomitant]
     Indication: DRUG USE FOR UNKNOWN INDICATION
     Dosage: UNK, 3/WEEK
  4. DECADRON [Concomitant]
     Indication: DRUG USE FOR UNKNOWN INDICATION
     Dosage: 16 MG, QD
  5. KEPPRA [Concomitant]
     Indication: DRUG USE FOR UNKNOWN INDICATION
     Dosage: 500 MG, BID
  6. PEPCID [Concomitant]
     Indication: DRUG USE FOR UNKNOWN INDICATION
  7. DECADRON [Concomitant]
     Indication: PROPHYLAXIS
     Dosage: 10 MG, UNK
     Route: 042
     Dates: start: 20070727
  8. ALOXI [Concomitant]
     Indication: PROPHYLAXIS
     Dosage: 250 A?G, UNK
     Route: 042
     Dates: start: 20070727
  9. BENADRYL [Concomitant]
     Indication: PROPHYLAXIS
     Dosage: 25 MG, UNK
     Route: 042
     Dates: start: 20070727
  10. ATROPINE [Concomitant]
     Indication: PROPHYLAXIS
     Dosage: 0.4 MG, UNK
     Route: 042
     Dates: start: 20070727

REACTIONS (2)
  - DISEASE PROGRESSION [None]
  - GLIOBLASTOMA [None]
